FAERS Safety Report 9469646 (Version 2)
Quarter: 2013Q3

REPORT INFORMATION
  Report Type: Spontaneous
  Country: US (occurrence: US)
  Receive Date: 20130822
  Receipt Date: 20130910
  Transmission Date: 20140515
  Serious: Yes (Hospitalization)
  Sender: FDA-Public Use
  Company Number: US-ELI_LILLY_AND_COMPANY-US201308005790

PATIENT
  Age: 70 Year
  Sex: Male

DRUGS (17)
  1. CIALIS [Suspect]
     Indication: ERECTILE DYSFUNCTION
     Dosage: 10 MG, QD
     Dates: start: 201307
  2. CIALIS [Suspect]
     Dosage: 2.5 MG, UNK
  3. COUMADIN                           /00014802/ [Concomitant]
  4. MULTAQ [Concomitant]
  5. CARDIZEM                           /00489701/ [Concomitant]
  6. POTASSIUM [Concomitant]
  7. TRAMADOL [Concomitant]
  8. LASIX                              /00032602/ [Concomitant]
  9. LUNESTA [Concomitant]
  10. CRESTOR [Concomitant]
  11. AMOXICILLIN [Concomitant]
  12. COLACE [Concomitant]
  13. TYLENOL                            /00020001/ [Concomitant]
     Dosage: UNK
  14. ALEVE [Concomitant]
  15. ALBUTEROL                          /00139501/ [Concomitant]
     Route: 055
  16. IPRATROPIUM [Concomitant]
     Route: 055
  17. BUDESONIDE [Concomitant]
     Route: 055

REACTIONS (2)
  - Pyrexia [Unknown]
  - Intercepted drug dispensing error [Unknown]
